FAERS Safety Report 6580658-1 (Version None)
Quarter: 2010Q1

REPORT INFORMATION
  Report Type: 
  Country: None (occurrence: None)
  Receive Date: 20100203
  Receipt Date: 20100119
  Transmission Date: 20100710
  Serious: Yes (Other)
  Sender: FDA-Public Use
  Company Number: 2010S1000363

PATIENT
  Age: 81 Year
  Sex: Female

DRUGS (5)
  1. PHOSPHOSODA FLAVOR NOT SPECIFIED [Suspect]
     Indication: COLONOSCOPY
     Dosage: 90 ML;TOTAL;PO
     Route: 048
     Dates: start: 20051113, end: 20051114
  2. SYNTHROID [Concomitant]
  3. XANAX [Concomitant]
  4. NAPROSYN [Concomitant]
  5. TENORETIC 100 [Concomitant]

REACTIONS (1)
  - RENAL DISORDER [None]
